FAERS Safety Report 11290408 (Version 2)
Quarter: 2015Q3

REPORT INFORMATION
  Report Type: Spontaneous
  Country: FR (occurrence: FR)
  Receive Date: 20150722
  Receipt Date: 20150724
  Transmission Date: 20151125
  Serious: Yes (Hospitalization)
  Sender: FDA-Public Use
  Company Number: FR-009507513-1507FRA009020

PATIENT
  Age: 60 Year
  Sex: Female
  Weight: 57 kg

DRUGS (4)
  1. NEULASTA [Suspect]
     Active Substance: PEGFILGRASTIM
     Dosage: 6 MG, QD
     Route: 058
     Dates: start: 20150321, end: 20150321
  2. EMEND [Suspect]
     Active Substance: APREPITANT
     Indication: PREMEDICATION
     Dosage: UNK
     Route: 048
     Dates: start: 20150316, end: 20150318
  3. ALKERAN [Suspect]
     Active Substance: MELPHALAN
     Dosage: 310 MG, PER CYCLE
     Route: 041
     Dates: start: 20150316, end: 20150316
  4. ZOPHREN (ONDANSETRON) [Suspect]
     Active Substance: ONDANSETRON
     Indication: PREMEDICATION
     Dosage: 8 MG, QD
     Route: 041
     Dates: start: 20150316, end: 20150317

REACTIONS (3)
  - Febrile bone marrow aplasia [Recovering/Resolving]
  - Diarrhoea [Recovered/Resolved]
  - Mucosal inflammation [Recovered/Resolved]

NARRATIVE: CASE EVENT DATE: 20150322
